FAERS Safety Report 13723517 (Version 1)
Quarter: 2017Q3

REPORT INFORMATION
  Report Type: Spontaneous
  Country: US (occurrence: US)
  Receive Date: 20170706
  Receipt Date: 20170706
  Transmission Date: 20171127
  Serious: No
  Sender: FDA-Public Use
  Company Number: US-JNJFOC-20160622994

PATIENT
  Age: 79 Year
  Sex: Female
  Weight: 49.44 kg

DRUGS (6)
  1. IMODIUM MULTI-SYMPTOM RELIEF [Suspect]
     Active Substance: DIMETHICONE\LOPERAMIDE HYDROCHLORIDE
     Indication: FAECES SOFT
     Route: 048
  2. LOSARTAN. [Concomitant]
     Active Substance: LOSARTAN
     Indication: HYPERTENSION
     Dosage: 8 YEARS
     Route: 065
  3. IMODIUM MULTI-SYMPTOM RELIEF [Suspect]
     Active Substance: DIMETHICONE\LOPERAMIDE HYDROCHLORIDE
     Route: 048
  4. IMODIUM A-D [Concomitant]
     Active Substance: LOPERAMIDE HYDROCHLORIDE
     Indication: DIARRHOEA
     Dosage: DURING THE DAY??FROM 2 MONTHS
     Route: 065
  5. INLYTA [Concomitant]
     Active Substance: AXITINIB
     Indication: NEOPLASM MALIGNANT
     Dosage: 1.5 YEAR
     Route: 065
  6. HYDROCHLORZIDE [Concomitant]
     Active Substance: HYDROCHLOROTHIAZIDE
     Indication: HYPERTENSION
     Dosage: 1 TO 2??FROM 1.5 YEARS
     Route: 065

REACTIONS (2)
  - Headache [Unknown]
  - Abdominal pain upper [Recovered/Resolved]
